FAERS Safety Report 6458800-2 (Version None)
Quarter: 2009Q4

REPORT INFORMATION
  Report Type: 
  Country: None (occurrence: None)
  Receive Date: 20091120
  Receipt Date: 20091106
  Transmission Date: 20100525
  Serious: Yes (Other)
  Sender: FDA-Public Use
  Company Number: 1000009222

PATIENT
  Age: 93 Year
  Sex: Female

DRUGS (7)
  1. ESCITALOPRAM OXALATE [Suspect]
     Indication: DEPRESSION
     Dosage: ORAL
     Route: 048
  2. ESCITALOPRAM OXALATE [Suspect]
     Indication: DEPRESSION
     Dosage: 10 MG (10 MG, 1 IN 1 D), ORAL
     Route: 048
     Dates: start: 20090601, end: 20090601
  3. RISEDRONATE (TABLETS) [Concomitant]
  4. DISGREN (TABLETS) [Concomitant]
  5. CALCIUM-SANDOZ FORTE-D (TABLETS) [Concomitant]
  6. PEPTICUM     (TABLETS) [Concomitant]
  7. ORFIDAL (TABLETS) [Concomitant]

REACTIONS (1)
  - DRUG HYPERSENSITIVITY [None]
